FAERS Safety Report 13702604 (Version 1)
Quarter: 2017Q2

REPORT INFORMATION
  Report Type: Report from Study
  Country: US (occurrence: US)
  Receive Date: 20170629
  Receipt Date: 20170629
  Transmission Date: 20170830
  Serious: Yes (Other)
  Sender: FDA-Public Use
  Company Number: PHEH2017US019239

PATIENT
  Sex: Male

DRUGS (1)
  1. ENTRESTO [Suspect]
     Active Substance: SACUBITRIL\VALSARTAN
     Indication: PRODUCT USED FOR UNKNOWN INDICATION
     Dosage: 50 MG (24 MG SACUBITRIL, 26 MG VALSARTAN), BID
     Route: 048

REACTIONS (5)
  - Rib fracture [Unknown]
  - Loss of consciousness [Unknown]
  - Visual impairment [Unknown]
  - Fall [Unknown]
  - Blood pressure decreased [Unknown]
